FAERS Safety Report 6870086-3 (Version None)
Quarter: 2010Q3

REPORT INFORMATION
  Report Type: 
  Country: None (occurrence: None)
  Receive Date: 20100722
  Receipt Date: 20100712
  Transmission Date: 20110219
  Serious: Yes (Other)
  Sender: FDA-Public Use
  Company Number: US-PFIZER INC-2010043561

PATIENT
  Sex: Female
  Weight: 85.27 kg

DRUGS (20)
  1. SUTENT [Suspect]
     Indication: RENAL CANCER
     Dosage: 50 MG, 1X/DAY
     Route: 048
     Dates: start: 20090508
  2. SUTENT [Suspect]
     Indication: LUNG NEOPLASM MALIGNANT
  3. COZAAR [Concomitant]
     Indication: HYPERTENSION
     Dosage: UNK
  4. INSULIN [Concomitant]
     Indication: DIABETES MELLITUS
     Dosage: UNK
  5. LEVOXYL [Concomitant]
     Indication: THYROID DISORDER
     Dosage: 0.1 MG, UNK
  6. CENESTIN [Concomitant]
     Dosage: 0.9
  7. NORVASC [Concomitant]
     Indication: HYPERTENSION
     Dosage: 5 MG, UNK
  8. METFORMIN [Concomitant]
     Dosage: UNK
  9. NEXIUM [Concomitant]
     Dosage: UNK
  10. ACETYLSALICYLIC ACID [Concomitant]
     Dosage: UNK
  11. ZETIA [Concomitant]
     Dosage: 10 MG, 1X/DAY
  12. INSULIN LISPRO [Concomitant]
     Dosage: UNK
  13. MONTELUKAST [Concomitant]
     Dosage: 10 MG, AS NEEDED
  14. ZANTAC [Concomitant]
     Dosage: 150 MG, DAILY
  15. ALLEGRA [Concomitant]
     Dosage: 180 MG, AS NEEDED
  16. FLOVENT [Concomitant]
     Dosage: UNK
  17. FORADIL [Concomitant]
     Dosage: UNK
  18. ALBUTEROL [Concomitant]
     Dosage: UNK
  19. LANTUS [Concomitant]
     Dosage: UNK
  20. XOLAIR [Concomitant]
     Dosage: 300 MG, MONTHLY

REACTIONS (2)
  - CATARACT [None]
  - PARAESTHESIA [None]
